FAERS Safety Report 9415459 (Version 1)
Quarter: 2013Q3

REPORT INFORMATION
  Report Type: Spontaneous
  Country: US (occurrence: US)
  Receive Date: 20130723
  Receipt Date: 20130723
  Transmission Date: 20140515
  Serious: Yes (Other)
  Sender: FDA-Public Use
  Company Number: US-WATSON-2013-12540

PATIENT
  Age: 37 Year
  Sex: Female
  Weight: 59 kg

DRUGS (4)
  1. NORCO 5/325 (WATSON LABORATORIES) [Suspect]
     Indication: PAIN
     Dosage: UNK UNK, UNKNOWN
     Route: 065
  2. CHANTIX [Suspect]
     Indication: SMOKING CESSATION THERAPY
     Dosage: 1 MG, BID
     Route: 065
     Dates: start: 20130612
  3. MOBIC [Concomitant]
     Indication: INFLAMMATION
     Dosage: 7.5 MG, DAILY
     Route: 065
  4. MOBIC [Concomitant]
     Indication: SWELLING

REACTIONS (9)
  - Hypersensitivity [Unknown]
  - Thinking abnormal [Unknown]
  - Anger [Unknown]
  - Depression [Unknown]
  - Fall [Unknown]
  - Anxiety [Unknown]
  - Insomnia [Unknown]
  - Abdominal discomfort [Unknown]
  - Nausea [Unknown]
